FAERS Safety Report 5054651-4 (Version None)
Quarter: 2006Q2

REPORT INFORMATION
  Report Type: 
  Country: None (occurrence: None)
  Receive Date: 20060614
  Receipt Date: 20060412
  Transmission Date: 20061013
  Serious: No
  Sender: FDA-Public Use
  Company Number: US200604002214

PATIENT
  Age: 70 Year
  Sex: Male

DRUGS (2)
  1. CIALIS [Suspect]
     Indication: ERECTILE DYSFUNCTION
     Dosage: 20 MG
     Dates: start: 20060314
  2. PAXIL [Concomitant]

REACTIONS (10)
  - ASTHENIA [None]
  - ATONIC URINARY BLADDER [None]
  - BACK PAIN [None]
  - DISCOMFORT [None]
  - INCONTINENCE [None]
  - MALAISE [None]
  - MUSCLE TIGHTNESS [None]
  - PAIN IN EXTREMITY [None]
  - PARAESTHESIA [None]
  - PARALYSIS [None]
